FAERS Safety Report 6722085-X (Version None)
Quarter: 2010Q2

REPORT INFORMATION
  Report Type: 
  Country: None (occurrence: None)
  Receive Date: 20100512
  Receipt Date: 20100505
  Transmission Date: 20101027
  Serious: Yes (Other)
  Sender: FDA-Public Use
  Company Number: US-ELI_LILLY_AND_COMPANY-US201005001204

PATIENT
  Sex: Female

DRUGS (4)
  1. HUMALOG [Suspect]
     Indication: DIABETES MELLITUS
     Dosage: 10 U, EACH MORNING
     Dates: start: 19980101
  2. HUMALOG [Suspect]
     Dosage: 10 U, OTHER
     Dates: start: 19980101
  3. HUMALOG [Suspect]
     Dosage: 10 U, EACH EVENING
     Dates: start: 19980101
  4. LEVEMIR [Concomitant]
     Dosage: UNK, EACH EVENING

REACTIONS (6)
  - BLOOD GLUCOSE INCREASED [None]
  - GALLBLADDER CANCER [None]
  - LARGE INTESTINE CARCINOMA [None]
  - METASTASES TO LYMPH NODES [None]
  - SMALL INTESTINE CARCINOMA [None]
  - VISUAL ACUITY REDUCED [None]
